FAERS Safety Report 6930010-1 (Version None)
Quarter: 2010Q3

REPORT INFORMATION
  Report Type: 
  Country: None (occurrence: None)
  Receive Date: 20100818
  Receipt Date: 20100805
  Transmission Date: 20110219
  Serious: Yes (Other)
  Sender: FDA-Public Use
  Company Number: US-ELI_LILLY_AND_COMPANY-US201008001754

PATIENT
  Age: 68 Year
  Sex: Male
  Weight: 113 kg

DRUGS (13)
  1. CYMBALTA [Suspect]
     Indication: DIABETIC NEUROPATHY
     Route: 048
  2. LYRICA [Concomitant]
     Indication: DIABETIC NEUROPATHY
     Dosage: 100 MG, 3/D
     Route: 048
  3. NEURONTIN [Concomitant]
     Indication: DIABETIC NEUROPATHY
     Dosage: 300 MG, 3/D
     Route: 048
  4. LOPRESSOR [Concomitant]
  5. WARFARIN SODIUM [Concomitant]
  6. POTASSIUM [Concomitant]
  7. LASIX [Concomitant]
  8. CLONIDINE [Concomitant]
  9. LIPITOR [Concomitant]
  10. ZESTRIL [Concomitant]
  11. CARDIZEM [Concomitant]
  12. GLIPIZIDE [Concomitant]
  13. LORTAB [Concomitant]

REACTIONS (2)
  - ABNORMAL DREAMS [None]
  - DELUSION [None]
